FAERS Safety Report 10514698 (Version 2)
Quarter: 2014Q4

REPORT INFORMATION
  Report Type: Spontaneous
  Country: US (occurrence: US)
  Receive Date: 20141013
  Receipt Date: 20141205
  Transmission Date: 20150528
  Serious: No
  Sender: FDA-Public Use
  Company Number: US-TEVA-514444USA

PATIENT
  Age: 56 Year
  Sex: Male

DRUGS (11)
  1. HYDROCODONE/HOMATROPINE [Concomitant]
     Active Substance: HOMATROPINE METHYLBROMIDE\HYDROCODONE BITARTRATE
  2. ULORIC [Concomitant]
     Active Substance: FEBUXOSTAT
  3. RESTASIS [Concomitant]
     Active Substance: CYCLOSPORINE
  4. COMBIGAN [Concomitant]
     Active Substance: BRIMONIDINE TARTRATE\TIMOLOL MALEATE
  5. PROAIR HFA [Suspect]
     Active Substance: ALBUTEROL SULFATE
     Indication: BRONCHITIS
     Route: 055
  6. NORCO [Concomitant]
     Active Substance: ACETAMINOPHEN\HYDROCODONE BITARTRATE
  7. LOTEMAX [Concomitant]
     Active Substance: LOTEPREDNOL ETABONATE
  8. TRAVATAN [Concomitant]
     Active Substance: TRAVOPROST
  9. CELEBREX [Concomitant]
     Active Substance: CELECOXIB
  10. CARISOPRODOL. [Concomitant]
     Active Substance: CARISOPRODOL
  11. AZITHROMYCIN [Concomitant]
     Active Substance: AZITHROMYCIN ANHYDROUS

REACTIONS (3)
  - Mouth swelling [Recovered/Resolved]
  - Lip swelling [Unknown]
  - Rubber sensitivity [Unknown]

NARRATIVE: CASE EVENT DATE: 20141003
